FAERS Safety Report 22017771 (Version 4)
Quarter: 2023Q2

REPORT INFORMATION
  Report Type: Spontaneous
  Country: US (occurrence: US)
  Receive Date: 20230221
  Receipt Date: 20230505
  Transmission Date: 20230722
  Serious: No
  Sender: FDA-Public Use
  Company Number: US-PFIZER INC-PV202300030627

PATIENT
  Age: 76 Year
  Sex: Female
  Weight: 68.753 kg

DRUGS (7)
  1. XELJANZ XR [Suspect]
     Active Substance: TOFACITINIB CITRATE
     Indication: Rheumatoid arthritis
     Dosage: 11 MG, 1X/DAY
     Route: 048
  2. ALBUTEROL SULFATE [Concomitant]
     Active Substance: ALBUTEROL SULFATE
     Dosage: 108 (90 BASE) MCG/ACT AEROSOL POWDER BREATH ACTIVATED I PUFF AS NEEDED INHALATION EVERY 4HOURS
  3. ATORVASTATIN CALCIUM [Concomitant]
     Active Substance: ATORVASTATIN CALCIUM
     Dosage: 1 DF, 1X/DAY
     Route: 048
  4. ESOMEPRAZOLE MAGNESIUM [Concomitant]
     Active Substance: ESOMEPRAZOLE MAGNESIUM
     Dosage: 1 DF, 1X/DAY
     Route: 048
  5. PREDNISONE [Concomitant]
     Active Substance: PREDNISONE
     Dosage: 1 DF, 1X/DAY (PRN)
     Route: 048
  6. VALSARTAN [Concomitant]
     Active Substance: VALSARTAN
     Dosage: 1 DF, 1X/DAY
     Route: 048
  7. AMLODIPINE BESYLATE [Concomitant]
     Active Substance: AMLODIPINE BESYLATE
     Dosage: 1 DF, 1X/DAY
     Route: 048

REACTIONS (7)
  - Infection [Unknown]
  - Arthralgia [Unknown]
  - Back pain [Unknown]
  - COVID-19 [Recovered/Resolved]
  - Body mass index increased [Unknown]
  - Blood pressure increased [Unknown]
  - Illness [Unknown]

NARRATIVE: CASE EVENT DATE: 20220101
